FAERS Safety Report 4837133-1 (Version None)
Quarter: 2005Q4

REPORT INFORMATION
  Report Type: 
  Country: None (occurrence: None)
  Receive Date: 20051122
  Receipt Date: 20051109
  Transmission Date: 20060501
  Serious: Yes (Other)
  Sender: FDA-Public Use
  Company Number: 2005155432

PATIENT
  Sex: Male
  Weight: 88.4514 kg

DRUGS (15)
  1. VIAGRA [Suspect]
     Indication: ERECTILE DYSFUNCTION
     Dosage: 25 MG (25 MG,AS NECESSARY), UNKNOWN
     Route: 065
  2. NEURONTIN [Suspect]
     Indication: NEUROPATHY PERIPHERAL
     Dosage: 900 MG (300 MG,3 IN 1 D), UNKNOWN
     Route: 065
     Dates: start: 20020101
  3. ZOLOFT [Suspect]
     Indication: AGITATION
     Dosage: 25 MG (25 MG, 1 IN 1 D), UNKNOWN
     Route: 065
     Dates: start: 20040801, end: 20050601
  4. METHYLPREDNISOLONE [Suspect]
     Indication: EPIDIDYMITIS
     Dosage: UNKNOWN
     Route: 065
  5. METHYLPREDNISOLONE [Suspect]
     Indication: ORCHITIS
     Dosage: UNKNOWN
     Route: 065
  6. PLAVIX [Concomitant]
  7. ASPIRIN [Concomitant]
  8. NEXIUM [Concomitant]
  9. BISOPROLOL (BISOPROLOL) [Concomitant]
  10. AMBIEN [Concomitant]
  11. QUININE SULFATE [Concomitant]
  12. NORTRIPTYLINE HCL [Concomitant]
  13. REQUIP [Concomitant]
  14. LIDOCAINE HCL INJ [Concomitant]
  15. FLOMAX [Concomitant]

REACTIONS (17)
  - AGITATION [None]
  - BLOOD CHOLESTEROL INCREASED [None]
  - CHEST DISCOMFORT [None]
  - CORONARY ARTERY OCCLUSION [None]
  - CYANOPSIA [None]
  - DRUG INEFFECTIVE [None]
  - EPIDIDYMITIS [None]
  - FLUSHING [None]
  - HYPERHIDROSIS [None]
  - HYPERTENSION [None]
  - INSOMNIA [None]
  - KNEE OPERATION [None]
  - LOSS OF EMPLOYMENT [None]
  - ORCHITIS [None]
  - PERIPHERAL SENSORY NEUROPATHY [None]
  - SPEECH DISORDER [None]
  - VISION BLURRED [None]
